FAERS Safety Report 8844821 (Version 1)
Quarter: 2012Q4

REPORT INFORMATION
  Report Type: Spontaneous
  Country: US (occurrence: None)
  Receive Date: 20121002
  Receipt Date: 20121002
  Transmission Date: 20130627
  Serious: Yes (Hospitalization)
  Sender: FDA-Public Use
  Company Number: RB-41766-2012

PATIENT
  Age: 51 Year
  Sex: Male

DRUGS (2)
  1. SUBOXONE [Suspect]
     Indication: DRUG DEPENDENCE
     Route: 060
     Dates: start: 2010, end: 20120402
  2. SUBOXONE [Suspect]
     Indication: DRUG DEPENDENCE
     Dates: start: 20120522, end: 201206

REACTIONS (3)
  - Drug withdrawal syndrome [None]
  - Depression [None]
  - Pain [None]
